FAERS Safety Report 8234325-9 (Version None)
Quarter: 2012Q1

REPORT INFORMATION
  Report Type: 
  Country: None (occurrence: None)
  Receive Date: 20120326
  Receipt Date: 20120319
  Transmission Date: 20120608
  Serious: Yes (Hospitalization, Other)
  Sender: FDA-Public Use
  Company Number: US-JNJFOC-20110704474

PATIENT
  Sex: Female

DRUGS (12)
  1. HYDROCHLOROTHIAZIDE [Concomitant]
     Indication: HYPERTENSION
     Route: 065
     Dates: start: 20080101
  2. ACETAMINOPHEN W/ CODEINE [Concomitant]
     Indication: TENDONITIS
     Route: 065
     Dates: start: 20080101
  3. GLUCOTROL XL [Concomitant]
     Indication: DIABETES MELLITUS
     Route: 065
     Dates: start: 20010101
  4. LEVAQUIN [Suspect]
     Indication: SINUSITIS
     Route: 048
     Dates: start: 20080101
  5. SINGULAIR [Concomitant]
     Indication: ASTHMA
     Route: 065
     Dates: start: 20010101
  6. LEVAQUIN [Suspect]
     Indication: MUSCULOSKELETAL PAIN
     Route: 048
     Dates: start: 20080101
  7. FLONASE [Suspect]
     Indication: SINUS DISORDER
     Route: 055
     Dates: start: 20010101
  8. EPIPEN [Concomitant]
     Indication: MULTIPLE ALLERGIES
     Route: 065
     Dates: start: 19970101, end: 20080101
  9. ALBUTEROL SULPHATE [Concomitant]
     Indication: ASTHMA
     Route: 065
     Dates: start: 20050101
  10. LANTUS [Concomitant]
     Indication: DIABETES MELLITUS
     Route: 065
     Dates: start: 20080101
  11. ASTELIN [Concomitant]
     Indication: SINUS DISORDER
     Route: 065
     Dates: start: 20010101
  12. ACCUPRIL [Concomitant]
     Indication: HYPERTENSION
     Route: 065
     Dates: start: 20060101

REACTIONS (4)
  - ROTATOR CUFF SYNDROME [None]
  - TENDON DISORDER [None]
  - TENDONITIS [None]
  - TENDON RUPTURE [None]
